FAERS Safety Report 15744542 (Version 1)
Quarter: 2018Q4

REPORT INFORMATION
  Report Type: Spontaneous
  Country: US (occurrence: US)
  Receive Date: 20181220
  Receipt Date: 20181220
  Transmission Date: 20190205
  Serious: Yes (Other)
  Sender: FDA-Public Use
  Company Number: US-MALLINCKRODT-T201800550

PATIENT
  Sex: Male
  Weight: 99 kg

DRUGS (3)
  1. OXYCODONE [Concomitant]
     Active Substance: OXYCODONE
     Indication: PRODUCT USED FOR UNKNOWN INDICATION
     Dosage: 15 MG
  2. FENTANYL TRANSDERMAL SYSTEM [Suspect]
     Active Substance: FENTANYL
     Dosage: 50 MCG/HR , EVERY 72 HOURS
     Route: 062
     Dates: start: 20180204
  3. FENTANYL TRANSDERMAL SYSTEM [Suspect]
     Active Substance: FENTANYL
     Indication: PAIN
     Dosage: 50 MCG/HR , EVERY 72 HOURS
     Route: 062
     Dates: end: 20180130

REACTIONS (9)
  - Insomnia [Unknown]
  - Abdominal pain lower [Unknown]
  - Constipation [Unknown]
  - Substance abuse [Unknown]
  - Abdominal pain upper [Unknown]
  - Withdrawal syndrome [Unknown]
  - Chest discomfort [Unknown]
  - Anxiety [Unknown]
  - Muscle spasms [Unknown]
